FAERS Safety Report 13349147 (Version 2)
Quarter: 2017Q1

REPORT INFORMATION
  Report Type: Spontaneous
  Country: JP (occurrence: JP)
  Receive Date: 20170320
  Receipt Date: 20170328
  Transmission Date: 20170428
  Serious: Yes (Hospitalization, Other)
  Sender: FDA-Public Use
  Company Number: JP-009507513-1703JPN001480J

PATIENT
  Age: 30 Year
  Sex: Female

DRUGS (1)
  1. MARVELON [Suspect]
     Active Substance: DESOGESTREL\ETHINYL ESTRADIOL
     Dosage: UNK
     Route: 048

REACTIONS (1)
  - Splenic infarction [Recovered/Resolved]

NARRATIVE: CASE EVENT DATE: 20170314
